FAERS Safety Report 25709631 (Version 2)
Quarter: 2025Q3

REPORT INFORMATION
  Report Type: Spontaneous
  Country: EU (occurrence: EU)
  Receive Date: 20250821
  Receipt Date: 20250917
  Transmission Date: 20251020
  Serious: Yes (Death, Life-Threatening, Other)
  Sender: DAIICHI
  Company Number: EU-AstraZeneca-CH-00932619A

PATIENT
  Sex: Female

DRUGS (1)
  1. TRASTUZUMAB DERUXTECAN [Suspect]
     Active Substance: TRASTUZUMAB DERUXTECAN
     Indication: Cervix carcinoma
     Dosage: 5.4 MG/KG, ONCE EVERY 3 WK
     Route: 041

REACTIONS (4)
  - Pancytopenia [Fatal]
  - Renal failure [Fatal]
  - Malignant neoplasm progression [Fatal]
  - Off label use [Unknown]
